FAERS Safety Report 6579820-3 (Version None)
Quarter: 2010Q1

REPORT INFORMATION
  Report Type: 
  Country: None (occurrence: None)
  Receive Date: 20100212
  Receipt Date: 20100210
  Transmission Date: 20100710
  Serious: Yes (Death)
  Sender: FDA-Public Use
  Company Number: CN-ROCHE-684692

PATIENT
  Sex: Male

DRUGS (2)
  1. CELLCEPT [Suspect]
     Indication: RENAL TRANSPLANT
     Dosage: PATIENT RECEIVED THIS DRUG IMMEDIATELY AFTER THE RENAL TRANSPLANT.
     Route: 048
     Dates: start: 20091203
  2. PROGRAF [Concomitant]
     Indication: RENAL TRANSPLANT
     Dosage: THE STRENGTH WAS 1 MG AND 0.5 MG.
     Route: 048
     Dates: start: 20091203

REACTIONS (1)
  - DEATH [None]
